FAERS Safety Report 14482040 (Version 1)
Quarter: 2018Q1

REPORT INFORMATION
  Report Type: Spontaneous
  Country: US (occurrence: US)
  Receive Date: 20180202
  Receipt Date: 20180202
  Transmission Date: 20180509
  Serious: No
  Sender: FDA-Public Use
  Company Number: None

PATIENT
  Age: 13 Year
  Sex: Female
  Weight: 58.5 kg

DRUGS (1)
  1. SEPTOCAINE [Suspect]
     Active Substance: ARTICAINE HYDROCHLORIDE\EPINEPHRINE BITARTRATE
     Indication: DENTAL IMPRESSION PROCEDURE
     Dosage: OTHER FREQUENCY:ONE TIME USE;OTHER ROUTE:INJECTION MOUTH?
     Dates: start: 20180201, end: 20180201

REACTIONS (5)
  - Lip swelling [None]
  - Oral pruritus [None]
  - Rash [None]
  - Pruritus [None]
  - Swelling face [None]

NARRATIVE: CASE EVENT DATE: 20180201
